FAERS Safety Report 8908959 (Version 1)
Quarter: 2012Q4

REPORT INFORMATION
  Report Type: Report from Study
  Country: BR (occurrence: BR)
  Receive Date: 20121114
  Receipt Date: 20121114
  Transmission Date: 20130627
  Serious: Yes (Other)
  Sender: FDA-Public Use
  Company Number: BR-ROCHE-1118646

PATIENT
  Sex: Female
  Weight: 85 kg

DRUGS (5)
  1. RITUXIMAB [Suspect]
     Indication: PRODUCT USED FOR UNKNOWN INDICATION
     Route: 042
     Dates: start: 2009
  2. RITUXIMAB [Suspect]
     Route: 042
     Dates: start: 201206
  3. RITUXIMAB [Suspect]
     Route: 042
     Dates: start: 201207
  4. RITUXIMAB [Suspect]
     Route: 042
     Dates: start: 20110215
  5. MYCOPHENOLATE [Concomitant]

REACTIONS (2)
  - Cataract [Unknown]
  - Urinary tract infection [Recovered/Resolved]
